FAERS Safety Report 25824119 (Version 1)
Quarter: 2025Q3

REPORT INFORMATION
  Report Type: Spontaneous
  Country: CA (occurrence: CA)
  Receive Date: 20250919
  Receipt Date: 20250919
  Transmission Date: 20251021
  Serious: Yes (Other)
  Sender: ORGANON
  Company Number: CA-ORGANON-O2509CAN001472

PATIENT
  Age: 57 Year
  Sex: Male
  Weight: 72.57 kg

DRUGS (1)
  1. PROSCAR [Suspect]
     Active Substance: FINASTERIDE
     Dosage: 2.5 MILLIGRAM, QD
     Route: 048

REACTIONS (2)
  - Alopecia [Recovered/Resolved]
  - Product substitution issue [Recovered/Resolved]
